FAERS Safety Report 5009918-2 (Version None)
Quarter: 2006Q2

REPORT INFORMATION
  Report Type: 
  Country: None (occurrence: None)
  Receive Date: 20060522
  Receipt Date: 20060512
  Transmission Date: 20061013
  Serious: Yes (Hospitalization, Other)
  Sender: FDA-Public Use
  Company Number: HQWYE347215MAY06

PATIENT
  Age: 82 Year
  Sex: Male

DRUGS (4)
  1. ETODOLAC [Suspect]
     Indication: PERIARTHRITIS
     Dosage: 400 MG 1X PER 1 DAY ORAL
     Route: 048
     Dates: start: 20060401, end: 20060412
  2. ASPIRIN [Concomitant]
  3. NADOLOL [Concomitant]
  4. NIFEDIPINE [Concomitant]

REACTIONS (2)
  - GASTRIC ULCER HAEMORRHAGE [None]
  - HAEMATEMESIS [None]
